FAERS Safety Report 8576111-6 (Version None)
Quarter: 2012Q3

REPORT INFORMATION
  Report Type: 
  Country: None (occurrence: None)
  Receive Date: 20120807
  Receipt Date: 20120802
  Transmission Date: 20120928
  Serious: Yes (Hospitalization, Other)
  Sender: FDA-Public Use
  Company Number: US-PFIZER INC-2012189219

PATIENT
  Age: 27 Year
  Sex: Female

DRUGS (3)
  1. CLOPIDOGREL [Concomitant]
     Indication: ANTIPLATELET THERAPY
     Dosage: 75MG, UNK
  2. VERAPAMIL HCL [Suspect]
     Indication: VASOSPASM
     Dosage: 20 MG (2.5MG/ML SOLUTION), UNK
     Route: 013
  3. ASPIRIN [Concomitant]
     Indication: ANTIPLATELET THERAPY
     Dosage: 325 MG, UNK

REACTIONS (4)
  - CLONIC CONVULSION [None]
  - GRAND MAL CONVULSION [None]
  - HEADACHE [None]
  - AGITATION [None]
